FAERS Safety Report 19789039 (Version 3)
Quarter: 2022Q1

REPORT INFORMATION
  Report Type: Spontaneous
  Country: US (occurrence: US)
  Receive Date: 20210904
  Receipt Date: 20220214
  Transmission Date: 20220423
  Serious: No
  Sender: FDA-Public Use
  Company Number: US-NOVARTISTESTPH-NVSC2021US201496

PATIENT
  Sex: Male

DRUGS (2)
  1. PROMACTA [Suspect]
     Active Substance: ELTROMBOPAG OLAMINE
     Indication: Immune thrombocytopenia
     Dosage: 25 MG (EVERY OTHER DAY)
     Route: 048
     Dates: start: 20201012
  2. PROMACTA [Suspect]
     Active Substance: ELTROMBOPAG OLAMINE
     Dosage: 25 MG (EVERY OTHER DAY)
     Route: 048
     Dates: start: 20210902

REACTIONS (2)
  - Platelet count decreased [Unknown]
  - Abdominal pain lower [Unknown]
